FAERS Safety Report 5753217-8 (Version None)
Quarter: 2008Q2

REPORT INFORMATION
  Report Type: 
  Country: None (occurrence: None)
  Receive Date: 20080530
  Receipt Date: 20080526
  Transmission Date: 20081010
  Serious: Yes (Death, Hospitalization)
  Sender: FDA-Public Use
  Company Number: DE-BAYER-200817097GPV

PATIENT
  Age: 83 Year
  Sex: Female
  Weight: 70 kg

DRUGS (4)
  1. NEXAVAR [Suspect]
     Indication: HEPATIC NEOPLASM MALIGNANT
     Dosage: TOTAL DAILY DOSE: 400 MG  UNIT DOSE: 200 MG
     Route: 048
     Dates: start: 20080401, end: 20080413
  2. BISOPROLOL [Concomitant]
     Indication: HYPERTENSION
     Route: 065
  3. RAMIPRIL [Concomitant]
     Indication: HYPERTENSION
     Route: 065
  4. DICLOFENAC [Concomitant]
     Indication: DRUG USE FOR UNKNOWN INDICATION
     Route: 065

REACTIONS (10)
  - BLISTER [None]
  - BLOOD AMYLASE INCREASED [None]
  - CARDIAC DISORDER [None]
  - CONFUSIONAL STATE [None]
  - DIARRHOEA [None]
  - GENERAL PHYSICAL HEALTH DETERIORATION [None]
  - LIPASE INCREASED [None]
  - MUCOSAL INFLAMMATION [None]
  - RASH GENERALISED [None]
  - SKIN REACTION [None]
